FAERS Safety Report 9716947 (Version 2)
Quarter: 2015Q3

REPORT INFORMATION
  Report Type: Spontaneous
  Country: US (occurrence: US)
  Receive Date: 20131127
  Receipt Date: 20150803
  Transmission Date: 20151125
  Serious: No
  Sender: FDA-Public Use
  Company Number: US-GILEAD-2009-0019999

PATIENT
  Age: 68 Year
  Sex: Female

DRUGS (16)
  1. ACIPHEX [Concomitant]
     Active Substance: RABEPRAZOLE SODIUM
  2. LYRICA [Concomitant]
     Active Substance: PREGABALIN
  3. NEXIUM [Concomitant]
     Active Substance: ESOMEPRAZOLE MAGNESIUM
  4. NORVASC [Concomitant]
     Active Substance: AMLODIPINE BESYLATE
  5. SUCRALFATE. [Concomitant]
     Active Substance: SUCRALFATE
  6. TYLENOL [Concomitant]
     Active Substance: ACETAMINOPHEN
  7. IMITREX [Concomitant]
     Active Substance: SUMATRIPTAN\SUMATRIPTAN SUCCINATE
  8. SYNTHROID [Concomitant]
     Active Substance: LEVOTHYROXINE SODIUM
  9. COZAAR [Concomitant]
     Active Substance: LOSARTAN POTASSIUM
  10. DILAUDID [Concomitant]
     Active Substance: HYDROMORPHONE HYDROCHLORIDE
  11. LETAIRIS [Suspect]
     Active Substance: AMBRISENTAN
     Indication: PULMONARY ARTERIAL HYPERTENSION
     Route: 048
     Dates: start: 20080916
  12. FUROSEMIDE. [Concomitant]
     Active Substance: FUROSEMIDE
  13. PROVIGIIL [Concomitant]
  14. ALLEGRA [Concomitant]
     Active Substance: FEXOFENADINE HYDROCHLORIDE
  15. TOPROL XL [Concomitant]
     Active Substance: METOPROLOL SUCCINATE
  16. CLONAZEPAM. [Concomitant]
     Active Substance: CLONAZEPAM

REACTIONS (1)
  - Nasal congestion [Unknown]

NARRATIVE: CASE EVENT DATE: 20090123
